FAERS Safety Report 7065104-6 (Version None)
Quarter: 2010Q4

REPORT INFORMATION
  Report Type: 
  Country: None (occurrence: None)
  Receive Date: 20101022
  Receipt Date: 20101022
  Transmission Date: 20110411
  Serious: Yes (Other)
  Sender: FDA-Public Use
  Company Number: None

PATIENT
  Age: 58 Year
  Sex: Female
  Weight: 145.8314 kg

DRUGS (1)
  1. DICLOFENAC SODIUM [Suspect]
     Indication: BURSITIS
     Dosage: 1 TABLET DAILY PO
     Route: 048
     Dates: start: 20101012, end: 20101020

REACTIONS (4)
  - BURNING SENSATION [None]
  - OCULAR HYPERAEMIA [None]
  - PRURITUS [None]
  - SKIN WRINKLING [None]
